FAERS Safety Report 15578725 (Version 1)
Quarter: 2018Q4

REPORT INFORMATION
  Report Type: Spontaneous
  Country: US (occurrence: US)
  Receive Date: 20181102
  Receipt Date: 20181102
  Transmission Date: 20190205
  Serious: Yes (Other)
  Sender: FDA-Public Use
  Company Number: US-APOTEX-2018AP023934

PATIENT
  Age: 13 Year
  Sex: Male

DRUGS (1)
  1. SERTRALINE [Suspect]
     Active Substance: SERTRALINE HYDROCHLORIDE
     Indication: PRODUCT USED FOR UNKNOWN INDICATION
     Route: 065

REACTIONS (5)
  - Drug level increased [Unknown]
  - Rhabdomyolysis [Unknown]
  - Renal failure [Unknown]
  - Cardio-respiratory arrest [Unknown]
  - Trismus [Unknown]
